FAERS Safety Report 6279697-X (Version None)
Quarter: 2009Q3

REPORT INFORMATION
  Report Type: 
  Country: None (occurrence: None)
  Receive Date: 20090723
  Receipt Date: 20090713
  Transmission Date: 20100115
  Serious: Yes (Death, Hospitalization, Other)
  Sender: FDA-Public Use
  Company Number: BR-BRISTOL-MYERS SQUIBB COMPANY-14698294

PATIENT
  Age: 61 Year
  Sex: Male
  Weight: 105 kg

DRUGS (9)
  1. APIXABAN [Suspect]
     Indication: THROMBOSIS PROPHYLAXIS
     Dosage: INTERRUPTED 07-JUL-2009
     Route: 048
     Dates: start: 20080704
  2. WARFARIN SODIUM [Suspect]
     Indication: THROMBOSIS PROPHYLAXIS
     Dosage: INTERRUPTED 07-JUL-2009
     Route: 048
     Dates: start: 20080704
  3. PLACEBO [Suspect]
     Indication: THROMBOSIS PROPHYLAXIS
     Dosage: INTERRUPTED 07-JUL-2009
     Route: 048
     Dates: start: 20080704
  4. CAPTOPRIL [Concomitant]
  5. AMLODIPINE [Concomitant]
  6. METFORMIN HCL [Concomitant]
     Indication: HYPOGLYCAEMIA
  7. FUROSEMIDE [Concomitant]
     Indication: HYPERTENSION
  8. OMEPRAZOLE [Concomitant]
  9. PROPRANOLOL HYDROCHLORIDE [Concomitant]

REACTIONS (2)
  - HAEMORRHAGIC STROKE [None]
  - ISCHAEMIC STROKE [None]
